FAERS Safety Report 5028808-2 (Version None)
Quarter: 2006Q2

REPORT INFORMATION
  Report Type: 
  Country: None (occurrence: None)
  Receive Date: 20060501
  Receipt Date: 20060313
  Transmission Date: 20061013
  Serious: No
  Sender: FDA-Public Use
  Company Number: 200612658US

PATIENT
  Sex: Female

DRUGS (3)
  1. KETEK [Suspect]
     Indication: EAR INFECTION
     Dates: start: 20060311
  2. KETEK [Suspect]
     Indication: SINUSITIS
     Dates: start: 20060311
  3. KETEK [Suspect]
     Indication: STREPTOCOCCAL INFECTION
     Dates: start: 20060311

REACTIONS (1)
  - DRUG INEFFECTIVE [None]
